FAERS Safety Report 20332098 (Version 2)
Quarter: 2022Q1

REPORT INFORMATION
  Report Type: Spontaneous
  Country: US (occurrence: US)
  Receive Date: 20220113
  Receipt Date: 20220121
  Transmission Date: 20220423
  Serious: No
  Sender: FDA-Public Use
  Company Number: US-BRISTOL-MYERS SQUIBB COMPANY-BMS-2021-137963

PATIENT
  Age: 92 Year
  Sex: Male

DRUGS (3)
  1. NORVASC [Interacting]
     Active Substance: AMLODIPINE BESYLATE
     Dosage: 10 MG, 1X/DAY
     Route: 048
  2. ELIQUIS [Interacting]
     Active Substance: APIXABAN
     Dosage: 5 MG, 1X/DAY
     Route: 048
  3. XTANDI [Interacting]
     Active Substance: ENZALUTAMIDE
     Indication: Prostate cancer
     Dosage: 80 MG, 2X/DAY
     Route: 048
     Dates: start: 202106, end: 20210625

REACTIONS (1)
  - Drug interaction [Unknown]
